FAERS Safety Report 13162274 (Version 1)
Quarter: 2017Q1

REPORT INFORMATION
  Report Type: Spontaneous
  Country: US (occurrence: US)
  Receive Date: 20170124
  Receipt Date: 20170124
  Transmission Date: 20170428
  Serious: Yes (Other)
  Sender: FDA-Public Use
  Company Number: None

PATIENT
  Age: 75 Year
  Sex: Male
  Weight: 112.5 kg

DRUGS (1)
  1. CLINDAMYCIN. [Suspect]
     Active Substance: CLINDAMYCIN
     Route: 048
     Dates: start: 20170116, end: 20170119

REACTIONS (2)
  - Swollen tongue [None]
  - Speech disorder [None]

NARRATIVE: CASE EVENT DATE: 20170124
